FAERS Safety Report 6183349-4 (Version None)
Quarter: 2009Q2

REPORT INFORMATION
  Report Type: 
  Country: None (occurrence: None)
  Receive Date: 20090506
  Receipt Date: 20090427
  Transmission Date: 20091009
  Serious: Yes (Death, Life-Threatening)
  Sender: FDA-Public Use
  Company Number: 2009-01709

PATIENT
  Age: 65 Year
  Sex: Male
  Weight: 42 kg

DRUGS (1)
  1. VELCADE [Suspect]
     Indication: MULTIPLE MYELOMA
     Dosage: 1 MG/M2; INTRAVENOUS
     Route: 042
     Dates: start: 20090421, end: 20090421

REACTIONS (2)
  - OXYGEN SATURATION DECREASED [None]
  - TUMOUR LYSIS SYNDROME [None]
